FAERS Safety Report 6741459-4 (Version None)
Quarter: 2010Q2

REPORT INFORMATION
  Report Type: 
  Country: None (occurrence: None)
  Receive Date: 20100524
  Receipt Date: 20100507
  Transmission Date: 20101027
  Serious: Yes (Other)
  Sender: FDA-Public Use
  Company Number: BCN-AS-2010-RR-120

PATIENT
  Age: 28 Year
  Sex: Female

DRUGS (2)
  1. CLARITHROMYCIN [Suspect]
     Indication: VAGINITIS BACTERIAL
     Dosage: ORAL
     Route: 048
     Dates: start: 20100420
  2. LAMICTAL [Suspect]
     Indication: EPILEPSY

REACTIONS (1)
  - CONVULSION [None]
